FAERS Safety Report 9012118 (Version 1)
Quarter: 2012Q4

REPORT INFORMATION
  Report Type: Spontaneous
  Country: US (occurrence: None)
  Receive Date: 20121227
  Receipt Date: 20121227
  Transmission Date: 20130627
  Serious: Yes (Other)
  Sender: FDA-Public Use
  Company Number: AUR-APL-2012-05505

PATIENT
  Age: 61 Year
  Sex: Male

DRUGS (3)
  1. FLUCONAZOLE (FLUCONAZOLE) [Suspect]
     Indication: DRUG USE FOR UNKNOWN INDICATION
  2. FLUCONAZOLE (FLUCONAZOLE) [Suspect]
     Indication: DRUG USE FOR UNKNOWN INDICATION
  3. BUDESONIDE (BUDESONIDE) [Suspect]

REACTIONS (3)
  - Drug interaction [None]
  - Cushing^s syndrome [None]
  - Drug level increased [None]
